FAERS Safety Report 19841517 (Version 1)
Quarter: 2021Q3

REPORT INFORMATION
  Report Type: Spontaneous
  Country: US (occurrence: US)
  Receive Date: 20210916
  Receipt Date: 20210916
  Transmission Date: 20211014
  Serious: Yes (Other)
  Sender: FDA-Public Use
  Company Number: US-LUPIN PHARMACEUTICALS INC.-2021-17594

PATIENT
  Age: 11 Year
  Sex: Female

DRUGS (14)
  1. METHYLPREDNISOLONE. [Suspect]
     Active Substance: METHYLPREDNISOLONE
     Dosage: 1 GRAM (TWICE WEEKLY)
     Route: 042
  2. PREDNISONE. [Concomitant]
     Active Substance: PREDNISONE
     Dosage: 10 MILLIGRAM, QD (0.14 MG/KG)
     Route: 048
  3. METHOTREXATE. [Concomitant]
     Active Substance: METHOTREXATE
     Indication: DERMATOMYOSITIS
     Dosage: UNK (15 MG/M^2)
     Route: 058
  4. PREDNISONE. [Concomitant]
     Active Substance: PREDNISONE
     Dosage: 30 MILLIGRAM, QD
     Route: 048
  5. IMMUNOGLOBULIN [Concomitant]
     Dosage: 1 GRAM PER KILOGRAM (EVERY 2 MONTHS)
     Route: 042
  6. METHYLPREDNISOLONE. [Suspect]
     Active Substance: METHYLPREDNISOLONE
     Dosage: 1 GRAM (EVERY MONTH)
     Route: 042
  7. FUROSEMIDE. [Concomitant]
     Active Substance: FUROSEMIDE
     Indication: OEDEMA
     Dosage: UNK
     Route: 065
  8. IMMUNOGLOBULIN [Concomitant]
     Dosage: 2 GRAM PER KILOGRAM (MONTHLY)
     Route: 042
  9. RITUXIMAB. [Concomitant]
     Active Substance: RITUXIMAB
     Indication: DERMATOMYOSITIS
     Dosage: 1 GRAM (750 MG/M^2 UP TO 1 G).
     Route: 042
  10. IMMUNOGLOBULIN [Concomitant]
     Indication: DERMATOMYOSITIS
     Dosage: 2 GRAM PER KILOGRAM
     Route: 042
  11. METHYLPREDNISOLONE. [Suspect]
     Active Substance: METHYLPREDNISOLONE
     Indication: DERMATOMYOSITIS
     Dosage: 30 MILLIGRAM/KILOGRAM, QD (INFUSION)
     Route: 042
  12. PREDNISONE. [Concomitant]
     Active Substance: PREDNISONE
     Indication: DERMATOMYOSITIS
     Dosage: 30 MILLIGRAM (0.5 MG/KG)
     Route: 048
  13. METHOTREXATE. [Concomitant]
     Active Substance: METHOTREXATE
     Dosage: 20 MILLIGRAM (WEEKLY)
     Route: 058
  14. ALBUMIN [Concomitant]
     Active Substance: ALBUMIN HUMAN
     Indication: OEDEMA
     Dosage: UNK
     Route: 065

REACTIONS (3)
  - Blood pressure abnormal [Recovered/Resolved]
  - Pulse pressure increased [Recovered/Resolved]
  - Hypotension [Recovered/Resolved]
